FAERS Safety Report 11159994 (Version 1)
Quarter: 2015Q2

REPORT INFORMATION
  Report Type: Spontaneous
  Country: PK (occurrence: PK)
  Receive Date: 20150603
  Receipt Date: 20150603
  Transmission Date: 20150821
  Serious: Yes (Death)
  Sender: FDA-Public Use
  Company Number: PHHY2015PK066294

PATIENT
  Age: 8 Year
  Sex: Female

DRUGS (2)
  1. SIMULECT [Suspect]
     Active Substance: BASILIXIMAB
     Indication: DIARRHOEA
     Dosage: 20 MG, QD
     Route: 042
     Dates: start: 20150525, end: 20150526
  2. SIMULECT [Suspect]
     Active Substance: BASILIXIMAB
     Indication: HAEMATOCHEZIA

REACTIONS (2)
  - Off label use [Unknown]
  - Graft versus host disease [Fatal]

NARRATIVE: CASE EVENT DATE: 20150525
